FAERS Safety Report 20688923 (Version 1)
Quarter: 2022Q2

REPORT INFORMATION
  Report Type: Spontaneous
  Country: US (occurrence: None)
  Receive Date: 20220407
  Receipt Date: 20220407
  Transmission Date: 20220721
  Serious: Yes (Disabling)
  Sender: FDA-Public Use
  Company Number: None

PATIENT
  Age: 33 Year
  Sex: Female
  Weight: 87.75 kg

DRUGS (1)
  1. GADOLINIUM [Suspect]
     Active Substance: GADOLINIUM
     Indication: Magnetic resonance imaging head

REACTIONS (24)
  - Feeling abnormal [None]
  - Cognitive disorder [None]
  - Blood test abnormal [None]
  - Weight increased [None]
  - Emotional disorder [None]
  - Pain [None]
  - Paraesthesia [None]
  - Swelling [None]
  - Burning sensation [None]
  - Fluid retention [None]
  - Bone pain [None]
  - Neuralgia [None]
  - Skin disorder [None]
  - Polycythaemia [None]
  - Migraine [None]
  - Headache [None]
  - Dizziness [None]
  - Dizziness [None]
  - Dyspnoea [None]
  - Sleep disorder [None]
  - Burning sensation [None]
  - Skin burning sensation [None]
  - Fibromyalgia [None]
  - Temperature regulation disorder [None]
